FAERS Safety Report 4699337-0 (Version None)
Quarter: 2005Q2

REPORT INFORMATION
  Report Type: 
  Country: None (occurrence: None)
  Receive Date: 20050624
  Receipt Date: 20050314
  Transmission Date: 20051028
  Serious: Yes (Hospitalization, Other)
  Sender: FDA-Public Use
  Company Number: US-MERCK-0503USA02949

PATIENT
  Age: 67 Year
  Sex: Male
  Weight: 84 kg

DRUGS (4)
  1. VIOXX [Suspect]
     Indication: ARTHRALGIA
     Route: 048
     Dates: start: 20000101, end: 20040101
  2. VIOXX [Suspect]
     Indication: RHEUMATOID ARTHRITIS
     Route: 048
     Dates: start: 20000101, end: 20040101
  3. CYANOCOBALAMIN [Concomitant]
     Route: 065
  4. VITAMIN E [Concomitant]
     Route: 065

REACTIONS (5)
  - ALCOHOLISM [None]
  - ARTHROPATHY [None]
  - CEREBROVASCULAR ACCIDENT [None]
  - HYPERTENSION [None]
  - PAIN [None]
